FAERS Safety Report 9982458 (Version 1)
Quarter: 2014Q1

REPORT INFORMATION
  Report Type: Report from Study
  Country: US (occurrence: US)
  Receive Date: 20140307
  Receipt Date: 20140307
  Transmission Date: 20141002
  Serious: No
  Sender: FDA-Public Use
  Company Number: US-ABBVIE-13P-163-1179320-00

PATIENT
  Age: 28 Year
  Sex: Female

DRUGS (8)
  1. HUMIRA [Suspect]
     Indication: CROHN^S DISEASE
     Dates: start: 20131113
  2. HUMIRA [Suspect]
     Dates: start: 20131127
  3. HUMIRA [Suspect]
  4. AZATHIOPRINE [Concomitant]
     Indication: PRODUCT USED FOR UNKNOWN INDICATION
  5. ALLOPURINOL [Concomitant]
     Indication: PRODUCT USED FOR UNKNOWN INDICATION
  6. B12 [Concomitant]
     Indication: PRODUCT USED FOR UNKNOWN INDICATION
  7. D3 [Concomitant]
     Indication: PRODUCT USED FOR UNKNOWN INDICATION
  8. BIOTIN [Concomitant]
     Indication: PRODUCT USED FOR UNKNOWN INDICATION

REACTIONS (3)
  - Cough [Not Recovered/Not Resolved]
  - Nasopharyngitis [Not Recovered/Not Resolved]
  - Pyrexia [Not Recovered/Not Resolved]
